FAERS Safety Report 21382846 (Version 1)
Quarter: 2022Q3

REPORT INFORMATION
  Report Type: Spontaneous
  Country: US (occurrence: US)
  Receive Date: 20220927
  Receipt Date: 20220927
  Transmission Date: 20221027
  Serious: No
  Sender: FDA-Public Use
  Company Number: US-SA-SAC20220921000692

PATIENT
  Age: 54 Year
  Sex: Female

DRUGS (34)
  1. FABRAZYME [Suspect]
     Active Substance: AGALSIDASE BETA
     Indication: Fabry^s disease
     Dosage: 65 MG, QOW
     Dates: start: 20070323
  2. HEPARIN [Concomitant]
     Active Substance: HEPARIN SODIUM
  3. DULCOLAX (BISACODYL) [Concomitant]
     Active Substance: BISACODYL
  4. METOPROLOL SUCCINATE [Concomitant]
     Active Substance: METOPROLOL SUCCINATE
  5. PNEUMOVAX 23 [Concomitant]
     Active Substance: PNEUMOCOCCAL VACCINE, POLYVALENT 23
  6. NITROFURANTOIN [Concomitant]
     Active Substance: NITROFURANTOIN
  7. VITAMIN D3 [Concomitant]
     Active Substance: CHOLECALCIFEROL
  8. EPINEPHRINE [Concomitant]
     Active Substance: EPINEPHRINE
  9. SEVELAMER CARBONATE [Concomitant]
     Active Substance: SEVELAMER CARBONATE
  10. ZOFRAN [Concomitant]
     Active Substance: ONDANSETRON HYDROCHLORIDE
  11. PROCHLORPERAZINE [Concomitant]
     Active Substance: PROCHLORPERAZINE
  12. PROGESTERONE [Concomitant]
     Active Substance: PROGESTERONE
  13. LIDOCAINE [Concomitant]
     Active Substance: LIDOCAINE
  14. VITAMIN B COMPLEX WITH C [Concomitant]
     Active Substance: ASCORBIC ACID\CALCIUM PANTOTHENATE\CYANOCOBALAMIN\NIACINAMIDE\PYRIDOXINE HYDROCHLORIDE\RIBOFLAVIN\TH
  15. ASPIRIN [Concomitant]
     Active Substance: ASPIRIN
  16. DOCUSATE SODIUM [Concomitant]
     Active Substance: DOCUSATE SODIUM
  17. STERILE WATER [Concomitant]
     Active Substance: WATER
  18. BISACODYL [Concomitant]
     Active Substance: BISACODYL
  19. SODIUM CHLORIDE [Concomitant]
     Active Substance: SODIUM CHLORIDE
  20. PANTOPRAZOLE SODIUM [Concomitant]
     Active Substance: PANTOPRAZOLE SODIUM
  21. GABAPENTIN [Concomitant]
     Active Substance: GABAPENTIN
  22. CLARITHROMYCIN [Concomitant]
     Active Substance: CLARITHROMYCIN
  23. HYDROXYZINE HYDROCHLORIDE [Concomitant]
     Active Substance: HYDROXYZINE HYDROCHLORIDE
  24. ACETAMINOPHEN [Concomitant]
     Active Substance: ACETAMINOPHEN
  25. ISOSORBIDE MONONITRATE [Concomitant]
     Active Substance: ISOSORBIDE MONONITRATE
  26. ELIQUIS [Concomitant]
     Active Substance: APIXABAN
  27. SHINGRIX [Concomitant]
     Active Substance: RECOMBINANT VARICELLA ZOSTER VIRUS (VZV) GLYCOPROTEIN E
  28. LOSARTAN POTASSIUM [Concomitant]
     Active Substance: LOSARTAN POTASSIUM
  29. MIRALAX [Concomitant]
     Active Substance: POLYETHYLENE GLYCOL 3350
  30. AUGMENTIN [Concomitant]
     Active Substance: AMOXICILLIN\CLAVULANATE POTASSIUM
  31. PFIZER-BIONTECH COVID-19 VACCINE [Concomitant]
     Active Substance: TOZINAMERAN
  32. SODIUM CHLORIDE [Concomitant]
     Active Substance: SODIUM CHLORIDE
  33. MAGNESIUM [Concomitant]
     Active Substance: MAGNESIUM
  34. COLD + FLU [PARACETAMOL;PHENYLEPHRINE HYDROCHLORIDE;PSEUDOEPHEDRINE HY [Concomitant]

REACTIONS (6)
  - Coccydynia [Unknown]
  - Dyspnoea exertional [Unknown]
  - Foot fracture [Unknown]
  - Fall [Unknown]
  - Fatigue [Unknown]
  - Arthralgia [Unknown]

NARRATIVE: CASE EVENT DATE: 20220101
